FAERS Safety Report 4445201-1 (Version None)
Quarter: 2004Q3

REPORT INFORMATION
  Report Type: 
  Country: None (occurrence: None)
  Receive Date: 20040903
  Receipt Date: 20040825
  Transmission Date: 20050211
  Serious: Yes (Other)
  Sender: FDA-Public Use
  Company Number: SUS1-2004-00513

PATIENT
  Age: 3 Year
  Sex: Male

DRUGS (1)
  1. ADDERALL XR (AMPHETAMINE ASPARTATE, AMPHETAMINE SULFATE, DEXTROAMPHETA [Suspect]
     Dosage: 20 MG, 1X/DAY; QD

REACTIONS (1)
  - CONVULSION [None]
